FAERS Safety Report 8879510 (Version 1)
Quarter: 2012Q4

REPORT INFORMATION
  Report Type: 
  Country: CH (occurrence: CH)
  Receive Date: 20121031
  Receipt Date: 20121031
  Transmission Date: 20130627
  Serious: Yes (Life-Threatening, Hospitalization)
  Sender: FDA-Public Use
  Company Number: SZ-ASTRAZENECA-2012SE81659

PATIENT
  Age: 46 Year
  Sex: Male

DRUGS (8)
  1. SEROQUEL [Suspect]
     Route: 048
     Dates: end: 201209
  2. CIPRALEX [Suspect]
     Route: 048
     Dates: end: 201209
  3. METHADONE [Suspect]
     Route: 048
     Dates: end: 201209
  4. SERESTA [Concomitant]
     Route: 048
  5. NEXIUM [Concomitant]
     Route: 048
  6. BERODUAL [Concomitant]
     Route: 055
  7. SERETIDE [Concomitant]
     Route: 055
  8. MST [Concomitant]
     Dates: start: 201209

REACTIONS (1)
  - Torsade de pointes [Recovered/Resolved]
